FAERS Safety Report 8552720-5 (Version None)
Quarter: 2012Q3

REPORT INFORMATION
  Report Type: 
  Country: None (occurrence: None)
  Receive Date: 20120731
  Receipt Date: 20120723
  Transmission Date: 20120928
  Serious: Yes (Other)
  Sender: FDA-Public Use
  Company Number: PHHY2012DE038047

PATIENT
  Sex: Male
  Weight: 57 kg

DRUGS (29)
  1. NEXIUM [Concomitant]
     Dosage: 1 DF, QD
  2. CETIRIZINE HCL [Concomitant]
     Dosage: 10 MG, PRN
     Route: 048
  3. SPIRIVA [Concomitant]
     Dosage: 1 DF, QD
     Dates: start: 20120101
  4. COTRIM DS [Concomitant]
     Dosage: UNK
     Dates: start: 20120101
  5. INSULIN [Concomitant]
     Dosage: 24 IU, QD
     Route: 058
  6. BOSUL [Concomitant]
     Dosage: 3.0 IU, QD
  7. FLUTICASONE PROPIONATE/SALMETEROL [Concomitant]
     Dosage: 1 DF, BID
  8. PULMOZYME [Concomitant]
     Dosage: 1 DF, QD
     Dates: start: 20120101
  9. URSO FALK [Concomitant]
     Dosage: 1 DF, BID
     Route: 048
  10. BOSUL [Concomitant]
     Dosage: 2.5 IU, QD
  11. ATROVENT [Concomitant]
     Dosage: 8 DRP, BID
  12. VITAMIN K TAB [Concomitant]
     Dosage: 1 DF, QMO
     Route: 030
  13. CREON [Concomitant]
  14. ESCITALOPRAM [Concomitant]
     Dosage: 20 MG, QD
  15. VITAMIN A [Concomitant]
     Dosage: 1 DF, QD
     Route: 048
  16. MIRTAZAPINE [Concomitant]
     Dosage: 1 DF, QD
  17. ZITHROMAX [Concomitant]
     Dosage: 1 DF, EVRY SECOND DAY
  18. COLISTIN [Concomitant]
     Dosage: UNK
     Dates: start: 20120101
  19. SINGULAIR [Concomitant]
     Dosage: 1 DF, QD
     Route: 048
  20. BOSUL [Concomitant]
     Dosage: 3.5 IU, QD
  21. PULMICORT [Concomitant]
     Dosage: UNK
     Dates: start: 20120101
  22. VITAMIN E [Concomitant]
     Dosage: 1 DF, QD
     Route: 048
  23. KANAVIT [Concomitant]
     Dosage: 10 DRP, WEEKLY
  24. COTRIM DS [Concomitant]
     Dosage: 1 DF, BID
     Dates: start: 20111227
  25. AMBISOME [Concomitant]
     Dosage: 1 DF, BID
     Dates: start: 20120101, end: 20120201
  26. TOBI [Suspect]
     Indication: CYSTIC FIBROSIS
     Dosage: 4 DF, BID
     Dates: start: 20120101, end: 20120301
  27. CREON [Concomitant]
  28. PREDNISONE TAB [Concomitant]
     Dosage: 5 MG, QD
     Route: 048
     Dates: start: 20120101
  29. VITAMIN D [Concomitant]
     Dosage: 1 DF, QMO
     Route: 030

REACTIONS (8)
  - OXYGEN SATURATION DECREASED [None]
  - INFECTIVE PULMONARY EXACERBATION OF CYSTIC FIBROSIS [None]
  - GYNAECOMASTIA [None]
  - DYSPHONIA [None]
  - TACHYPNOEA [None]
  - PYREXIA [None]
  - HAEMATURIA [None]
  - PULMONARY HAEMORRHAGE [None]
